FAERS Safety Report 5117888-1 (Version None)
Quarter: 2006Q3

REPORT INFORMATION
  Report Type: 
  Country: None (occurrence: None)
  Receive Date: 20060926
  Receipt Date: 20060911
  Transmission Date: 20061208
  Serious: Yes (Hospitalization)
  Sender: FDA-Public Use
  Company Number: 2006BI008759

PATIENT
  Age: 60 Year
  Sex: Male

DRUGS (17)
  1. ZEVALIN [Suspect]
     Indication: BONE MARROW CONDITIONING REGIMEN
     Dosage: 1174 MBQ;1X;IV
     Route: 042
     Dates: start: 20060427, end: 20060427
  2. MABTHERA [Concomitant]
  3. CARMUSTINE [Concomitant]
  4. ETOPOSIDE [Concomitant]
  5. ARACYTINE [Concomitant]
  6. MELPHALAN [Concomitant]
  7. PROZAC [Concomitant]
  8. OMEPRAZOLE [Concomitant]
  9. LASIX [Concomitant]
  10. TOPALGIC ^HOUDE^ [Concomitant]
  11. SOLU-MEDROL [Concomitant]
  12. PLITICAN [Concomitant]
  13. CYCLOPHOSPHAMIDE [Concomitant]
  14. PREDNISONE TAB [Concomitant]
  15. DEXAMETHASONE TAB [Concomitant]
  16. CISPLATIN [Concomitant]
  17. CYMBICORT TURBUHALER [Concomitant]

REACTIONS (30)
  - ACUTE RESPIRATORY FAILURE [None]
  - AGITATION [None]
  - AMYOTROPHY [None]
  - ANXIETY [None]
  - BLOOD MAGNESIUM INCREASED [None]
  - BLOOD PH INCREASED [None]
  - BLOOD POTASSIUM DECREASED [None]
  - BLOOD UREA INCREASED [None]
  - DYSAESTHESIA [None]
  - DYSKINESIA [None]
  - ENCEPHALOPATHY [None]
  - ESCHAR [None]
  - ESCHERICHIA INFECTION [None]
  - ESCHERICHIA URINARY TRACT INFECTION [None]
  - GASTRITIS [None]
  - HAEMATEMESIS [None]
  - HERPES VIRUS INFECTION [None]
  - HYPERSENSITIVITY [None]
  - HYPOTENSION [None]
  - IMMUNE SYSTEM DISORDER [None]
  - INTERSTITIAL LUNG DISEASE [None]
  - NEUTROPHIL COUNT DECREASED [None]
  - OESOPHAGITIS [None]
  - PLATELET COUNT DECREASED [None]
  - PROTEIN TOTAL DECREASED [None]
  - PULMONARY FIBROSIS [None]
  - PULMONARY TOXICITY [None]
  - STAPHYLOCOCCAL INFECTION [None]
  - STEM CELL TRANSPLANT [None]
  - WHITE BLOOD CELL COUNT DECREASED [None]
